FAERS Safety Report 4539958-9 (Version None)
Quarter: 2004Q4

REPORT INFORMATION
  Report Type: 
  Country: None (occurrence: None)
  Receive Date: 20041223
  Receipt Date: 20041215
  Transmission Date: 20050328
  Serious: Yes (Other)
  Sender: FDA-Public Use
  Company Number: 2004114437

PATIENT
  Sex: Female
  Weight: 61.6892 kg

DRUGS (2)
  1. NEURONTIN [Suspect]
     Indication: FIBROMYALGIA
     Dosage: 1200 MG (1 D)
  2. DYAZIDE [Concomitant]

REACTIONS (5)
  - CONDITION AGGRAVATED [None]
  - FIBROMYALGIA [None]
  - MACULAR DEGENERATION [None]
  - PAIN [None]
  - TREATMENT NONCOMPLIANCE [None]
